FAERS Safety Report 17062878 (Version 2)
Quarter: 2022Q3

REPORT INFORMATION
  Report Type: Spontaneous
  Country: CA (occurrence: CA)
  Receive Date: 20191122
  Receipt Date: 20220729
  Transmission Date: 20221027
  Serious: Yes (Other)
  Sender: FDA-Public Use
  Company Number: CA-TEVA-2019-CA-1002487

PATIENT
  Age: 49 Year
  Sex: Female

DRUGS (31)
  1. ESCITALOPRAM OXALATE [Suspect]
     Active Substance: ESCITALOPRAM OXALATE
     Indication: Product used for unknown indication
     Route: 065
  2. ESCITALOPRAM OXALATE [Suspect]
     Active Substance: ESCITALOPRAM OXALATE
     Dosage: 1 DOSAGE FORMS DAILY;
     Route: 065
  3. ESCITALOPRAM OXALATE [Suspect]
     Active Substance: ESCITALOPRAM OXALATE
     Dosage: 1 DOSAGE FORMS DAILY;
     Route: 065
  4. METHOTREXATE [Suspect]
     Active Substance: METHOTREXATE
     Indication: Product used for unknown indication
     Route: 065
  5. COSENTYX [Suspect]
     Active Substance: SECUKINUMAB
     Indication: Ankylosing spondylitis
     Route: 058
  6. COSENTYX [Suspect]
     Active Substance: SECUKINUMAB
     Indication: Product used for unknown indication
     Route: 065
  7. COSENTYX [Suspect]
     Active Substance: SECUKINUMAB
     Route: 058
  8. COSENTYX [Suspect]
     Active Substance: SECUKINUMAB
     Route: 058
  9. COSENTYX [Suspect]
     Active Substance: SECUKINUMAB
     Route: 058
  10. COSENTYX [Suspect]
     Active Substance: SECUKINUMAB
     Route: 058
  11. COSENTYX [Suspect]
     Active Substance: SECUKINUMAB
     Route: 058
  12. COSENTYX [Suspect]
     Active Substance: SECUKINUMAB
     Route: 058
  13. COSENTYX [Suspect]
     Active Substance: SECUKINUMAB
     Route: 058
  14. COSENTYX [Suspect]
     Active Substance: SECUKINUMAB
     Route: 058
  15. COSENTYX [Suspect]
     Active Substance: SECUKINUMAB
     Route: 058
  16. COSENTYX [Suspect]
     Active Substance: SECUKINUMAB
     Route: 065
  17. COSENTYX [Suspect]
     Active Substance: SECUKINUMAB
     Route: 058
  18. COSENTYX [Suspect]
     Active Substance: SECUKINUMAB
     Route: 058
  19. POVIDONE-IODINE [Suspect]
     Active Substance: POVIDONE-IODINE
     Indication: Mouth ulceration
     Route: 065
  20. VITAMIN D3 [Suspect]
     Active Substance: CHOLECALCIFEROL
     Indication: Product used for unknown indication
     Route: 065
  21. DICLOFENAC DIETHYLAMINE [Suspect]
     Active Substance: DICLOFENAC DIETHYLAMINE
     Indication: Product used for unknown indication
     Route: 065
  22. CHOLECALCIFEROL [Suspect]
     Active Substance: CHOLECALCIFEROL
     Indication: Product used for unknown indication
     Route: 065
  23. POVIDONE-IODINE [Suspect]
     Active Substance: POVIDONE-IODINE
     Indication: Mouth ulceration
     Route: 065
  24. ENBREL [Concomitant]
     Active Substance: ETANERCEPT
     Indication: Product used for unknown indication
     Route: 065
  25. HUMIRA [Concomitant]
     Active Substance: ADALIMUMAB
     Indication: Product used for unknown indication
     Route: 065
  26. HUMIRA [Concomitant]
     Active Substance: ADALIMUMAB
     Route: 058
  27. HUMIRA [Concomitant]
     Active Substance: ADALIMUMAB
     Route: 058
  28. REMICADE [Concomitant]
     Active Substance: INFLIXIMAB
     Indication: Product used for unknown indication
     Route: 065
  29. REMICADE [Concomitant]
     Active Substance: INFLIXIMAB
     Route: 042
  30. REMICADE [Concomitant]
     Active Substance: INFLIXIMAB
  31. REMICADE [Concomitant]
     Active Substance: INFLIXIMAB
     Route: 042

REACTIONS (15)
  - Abdominal discomfort [Not Recovered/Not Resolved]
  - Arthralgia [Not Recovered/Not Resolved]
  - Lip ulceration [Not Recovered/Not Resolved]
  - Lower respiratory tract infection viral [Not Recovered/Not Resolved]
  - Malaise [Not Recovered/Not Resolved]
  - Mouth ulceration [Not Recovered/Not Resolved]
  - Musculoskeletal stiffness [Not Recovered/Not Resolved]
  - Nasopharyngitis [Not Recovered/Not Resolved]
  - Nausea [Not Recovered/Not Resolved]
  - Pain [Not Recovered/Not Resolved]
  - Swollen tongue [Not Recovered/Not Resolved]
  - Tonsillar ulcer [Not Recovered/Not Resolved]
  - Tonsillitis [Not Recovered/Not Resolved]
  - Vomiting [Not Recovered/Not Resolved]
  - No adverse event [Not Recovered/Not Resolved]
